FAERS Safety Report 16176615 (Version 2)
Quarter: 2019Q2

REPORT INFORMATION
  Report Type: Spontaneous
  Country: CN (occurrence: CN)
  Receive Date: 20190409
  Receipt Date: 20190412
  Transmission Date: 20190711
  Serious: Yes (Other)
  Sender: FDA-Public Use
  Company Number: CN-ELI_LILLY_AND_COMPANY-CN201904001765

PATIENT
  Age: 15 Year
  Sex: Male
  Weight: 60 kg

DRUGS (3)
  1. STRATTERA [Suspect]
     Active Substance: ATOMOXETINE HYDROCHLORIDE
     Indication: PSYCHOMOTOR HYPERACTIVITY
     Dosage: UNK
     Route: 048
     Dates: start: 201805, end: 201901
  2. STRATTERA [Suspect]
     Active Substance: ATOMOXETINE HYDROCHLORIDE
     Dosage: 25 MG, BID
     Route: 048
     Dates: start: 20190201, end: 20190319
  3. STRATTERA [Suspect]
     Active Substance: ATOMOXETINE HYDROCHLORIDE
     Dosage: 40 MG, DAILY
     Route: 048
     Dates: start: 20190320, end: 20190330

REACTIONS (5)
  - Suicidal behaviour [Unknown]
  - Body height below normal [Unknown]
  - Decreased appetite [Unknown]
  - Flatulence [Unknown]
  - Antisocial behaviour [Unknown]
